FAERS Safety Report 23857049 (Version 2)
Quarter: 2024Q4

REPORT INFORMATION
  Report Type: Report from Study
  Country: US (occurrence: US)
  Receive Date: 20240515
  Receipt Date: 20241115
  Transmission Date: 20250115
  Serious: Yes (Other)
  Sender: UCB
  Company Number: US-UCBSA-2024023199

PATIENT
  Age: 2 Year
  Sex: Male

DRUGS (1)
  1. FINTEPLA [Suspect]
     Active Substance: FENFLURAMINE
     Indication: Lennox-Gastaut syndrome
     Dosage: 1.9 MILLILITER, 2X/DAY (BID)

REACTIONS (12)
  - Hyperdynamic left ventricle [Not Recovered/Not Resolved]
  - Left-to-right cardiac shunt [Unknown]
  - Tricuspid valve disease [Unknown]
  - Pericardial effusion [Recovered/Resolved]
  - Transvalvular pressure gradient increased [Recovered/Resolved]
  - Cardiac ventricular disorder [Not Recovered/Not Resolved]
  - Blood pressure diastolic decreased [Unknown]
  - Right ventricular dilatation [Unknown]
  - Right ventricular hypertrophy [Unknown]
  - Right atrial dilatation [Unknown]
  - Aortic valve disease [Recovered/Resolved]
  - Aortic dilatation [Recovered/Resolved]

NARRATIVE: CASE EVENT DATE: 20230428
